FAERS Safety Report 7094547-X (Version None)
Quarter: 2010Q4

REPORT INFORMATION
  Report Type: 
  Country: None (occurrence: None)
  Receive Date: 20101110
  Receipt Date: 20101104
  Transmission Date: 20110411
  Serious: Yes (Hospitalization)
  Sender: FDA-Public Use
  Company Number: AU-CELGENEUS-008-C5013-09031522

PATIENT
  Sex: Male
  Weight: 84.3 kg

DRUGS (7)
  1. CC-5013 [Suspect]
     Indication: MULTIPLE MYELOMA
     Route: 048
     Dates: start: 20070307
  2. CC-5013 [Suspect]
     Route: 048
     Dates: start: 20090310
  3. PLACEBO FOR CC-5013 [Suspect]
     Indication: MULTIPLE MYELOMA
     Route: 048
  4. MELPHALAN HYDROCHLORIDE [Suspect]
     Indication: MULTIPLE MYELOMA
     Route: 065
     Dates: start: 20070307, end: 20071110
  5. PREDNISONE [Suspect]
     Indication: MULTIPLE MYELOMA
     Route: 065
     Dates: start: 20070307, end: 20071110
  6. ASPIRIN [Concomitant]
     Route: 065
     Dates: start: 20040101
  7. PARACETAMOL [Concomitant]
     Route: 065
     Dates: start: 20080310

REACTIONS (1)
  - HEMIPARESIS [None]
